FAERS Safety Report 7944537-7 (Version None)
Quarter: 2011Q4

REPORT INFORMATION
  Report Type: 
  Country: None (occurrence: None)
  Receive Date: 20111122
  Receipt Date: 20110902
  Transmission Date: 20120403
  Serious: Yes (Other)
  Sender: FDA-Public Use
  Company Number: PHHY2011US69642

PATIENT
  Age: 62 Year
  Sex: Female

DRUGS (7)
  1. LYRICA [Concomitant]
  2. SERTRALINE HYDROCHLORIDE [Concomitant]
  3. GILENYA [Suspect]
     Indication: MULTIPLE SCLEROSIS
     Dosage: 0.5MG, DAILY, ORAL, 0.5 MG, QD, ORAL
     Route: 048
     Dates: start: 20110725
  4. TRAZODONE HCL [Concomitant]
  5. ESTRATEST [Concomitant]
  6. FAMPRIDINE [Concomitant]
  7. AMBIEN [Concomitant]

REACTIONS (4)
  - NAUSEA [None]
  - DYSPNOEA [None]
  - COUGH [None]
  - UPPER RESPIRATORY TRACT INFECTION [None]
